FAERS Safety Report 10052567 (Version 1)
Quarter: 2014Q2

REPORT INFORMATION
  Report Type: Spontaneous
  Country: US (occurrence: US)
  Receive Date: 20140402
  Receipt Date: 20140402
  Transmission Date: 20141212
  Serious: No
  Sender: FDA-Public Use
  Company Number: US-BAYER-2014-048274

PATIENT
  Age: 84 Year
  Sex: Female
  Weight: 48.98 kg

DRUGS (4)
  1. ALEVE TABLET [Suspect]
     Indication: PAIN
     Dosage: UNK
     Route: 048
     Dates: start: 20140323
  2. ALEVE TABLET [Suspect]
     Indication: PAIN
     Dosage: 1 DF, EVERY FEW HOURS
     Route: 048
  3. ALEVE TABLET [Suspect]
     Indication: PAIN
     Dosage: 2 DF, UNK
     Route: 048
     Dates: start: 20140327, end: 20140327
  4. HYDROCODONE [Concomitant]
     Dosage: UNK

REACTIONS (2)
  - Drug ineffective [None]
  - Inappropriate schedule of drug administration [None]
